FAERS Safety Report 15216328 (Version 1)
Quarter: 2018Q3

REPORT INFORMATION
  Report Type: Spontaneous
  Country: US (occurrence: US)
  Receive Date: 20180704
  Receipt Date: 20180704
  Transmission Date: 20181010
  Serious: No
  Sender: FDA-Public Use
  Company Number: None

PATIENT
  Age: 49 Year
  Sex: Female
  Weight: 63 kg

DRUGS (1)
  1. LAMOTRIGINE. [Suspect]
     Active Substance: LAMOTRIGINE
     Indication: BIPOLAR DISORDER
     Route: 048
     Dates: start: 20180501, end: 20180514

REACTIONS (9)
  - Rash generalised [None]
  - Anxiety [None]
  - Erythema [None]
  - Rash pruritic [None]
  - Tenderness [None]
  - Rash [None]
  - Depression [None]
  - Blister [None]
  - Piloerection [None]

NARRATIVE: CASE EVENT DATE: 20180501
